FAERS Safety Report 5660016-4 (Version None)
Quarter: 2008Q1

REPORT INFORMATION
  Report Type: 
  Country: None (occurrence: None)
  Receive Date: 20080311
  Receipt Date: 20070819
  Transmission Date: 20080703
  Serious: No
  Sender: FDA-Public Use
  Company Number: US-BAYER-200712713BCC

PATIENT
  Age: 16 Year
  Sex: Female
  Weight: 64 kg

DRUGS (2)
  1. ALEVE GELCAP [Suspect]
     Indication: JOINT INJURY
     Dosage: UNIT DOSE: 220 MG
     Route: 048
     Dates: start: 20070818
  2. TOPICAL STEROIDS [Concomitant]
     Indication: ECZEMA

REACTIONS (1)
  - NO ADVERSE EVENT [None]
